FAERS Safety Report 18341878 (Version 1)
Quarter: 2020Q4

REPORT INFORMATION
  Report Type: Spontaneous
  Country: US (occurrence: US)
  Receive Date: 20201005
  Receipt Date: 20201005
  Transmission Date: 20210113
  Serious: Yes (Other)
  Sender: FDA-Public Use
  Company Number: US-ALEXION-A202014386

PATIENT
  Sex: Female

DRUGS (1)
  1. STRENSIQ [Suspect]
     Active Substance: ASFOTASE ALFA
     Indication: HYPOPHOSPHATASIA
     Dosage: UNK
     Route: 065
     Dates: start: 20200921

REACTIONS (7)
  - Pulmonary arterial pressure increased [Unknown]
  - Right ventricular dilatation [Unknown]
  - Endotracheal intubation [Unknown]
  - Right ventricular hypertrophy [Unknown]
  - Ventricular hypokinesia [Unknown]
  - Hypertrophic cardiomyopathy [Unknown]
  - Left ventricular dysfunction [Unknown]

NARRATIVE: CASE EVENT DATE: 20200921
